FAERS Safety Report 6762135-8 (Version None)
Quarter: 2010Q2

REPORT INFORMATION
  Report Type: 
  Country: None (occurrence: None)
  Receive Date: 20100609
  Receipt Date: 20100527
  Transmission Date: 20101027
  Serious: Yes (Death)
  Sender: FDA-Public Use
  Company Number: BE-GENZYME-CLOF-1000991

PATIENT

DRUGS (1)
  1. EVOLTRA [Suspect]
     Indication: ACUTE LEUKAEMIA
     Dosage: UNK UNK, UNK
     Route: 042

REACTIONS (1)
  - DEATH [None]
